FAERS Safety Report 13299299 (Version 2)
Quarter: 2017Q1

REPORT INFORMATION
  Report Type: Report from Study
  Country: CO (occurrence: CO)
  Receive Date: 20170306
  Receipt Date: 20170314
  Transmission Date: 20170428
  Serious: Yes (Death, Other)
  Sender: FDA-Public Use
  Company Number: CO-BAYER-2015-277940

PATIENT
  Age: 61 Year
  Sex: Female

DRUGS (13)
  1. FUROSEMIDE. [Concomitant]
     Active Substance: FUROSEMIDE
     Dosage: 2 DF, QD
  2. VENTAVIS [Suspect]
     Active Substance: ILOPROST
     Indication: PULMONARY HYPERTENSION
     Dosage: 4 NEBULIZATION DAILY
     Route: 055
     Dates: start: 20140701
  3. VENTAVIS [Suspect]
     Active Substance: ILOPROST
     Indication: PULMONARY HYPERTENSION
     Dosage: 6 DF, QD
     Route: 055
  4. VENTAVIS [Suspect]
     Active Substance: ILOPROST
     Indication: PULMONARY HYPERTENSION
     Dosage: 5 NEBULISATIONS DAILY
     Dates: start: 20150622
  5. SILDENAFIL. [Concomitant]
     Active Substance: SILDENAFIL
     Dosage: UNK
  6. BOSENTAN. [Concomitant]
     Active Substance: BOSENTAN
     Dosage: UNK
  7. ADEMPAS [Suspect]
     Active Substance: RIOCIGUAT
     Dosage: 1 MG, UNK
     Dates: start: 2000
  8. VENTAVIS [Suspect]
     Active Substance: ILOPROST
     Indication: PULMONARY HYPERTENSION
     Dosage: 5 NEBULIZATION DAILY
     Route: 055
  9. VENTAVIS [Suspect]
     Active Substance: ILOPROST
     Indication: PULMONARY HYPERTENSION
     Dosage: 6 NEBULIZATION DAILY
     Route: 055
  10. VENTAVIS [Suspect]
     Active Substance: ILOPROST
     Indication: PULMONARY HYPERTENSION
     Dosage: 5 NEBULIZATIONS DAILY
     Route: 055
     Dates: start: 201508
  11. SPIRONOLACTONE. [Concomitant]
     Active Substance: SPIRONOLACTONE
     Dosage: 50 MG, UNK
  12. VENTAVIS [Suspect]
     Active Substance: ILOPROST
     Indication: PULMONARY HYPERTENSION
     Dosage: 3 TO 4 NEBULIZATIONS DAILY UNK
  13. URSACOL [Concomitant]
     Active Substance: URSODIOL
     Dosage: 300 MG, UNK

REACTIONS (19)
  - Influenza [Not Recovered/Not Resolved]
  - Dyspnoea [Not Recovered/Not Resolved]
  - Cough [Unknown]
  - Pulmonary hypertension [Fatal]
  - Blood pressure increased [Not Recovered/Not Resolved]
  - Dizziness [Recovered/Resolved]
  - Influenza [Not Recovered/Not Resolved]
  - Generalised oedema [Not Recovered/Not Resolved]
  - Product use issue [Recovered/Resolved]
  - Asphyxia [Not Recovered/Not Resolved]
  - Product use issue [Recovered/Resolved]
  - Headache [Not Recovered/Not Resolved]
  - Peripheral swelling [Not Recovered/Not Resolved]
  - Product use issue [Recovered/Resolved]
  - Inflammation [Not Recovered/Not Resolved]
  - Cough [Not Recovered/Not Resolved]
  - Oedema peripheral [Not Recovered/Not Resolved]
  - Product use issue [Recovered/Resolved]
  - Sleep apnoea syndrome [Not Recovered/Not Resolved]

NARRATIVE: CASE EVENT DATE: 20140701
